FAERS Safety Report 7778990-9 (Version None)
Quarter: 2011Q3

REPORT INFORMATION
  Report Type: 
  Country: None (occurrence: None)
  Receive Date: 20110926
  Receipt Date: 20110920
  Transmission Date: 20111222
  Serious: Yes (Death)
  Sender: FDA-Public Use
  Company Number: US-CELGENEUS-163-21880-11082385

PATIENT
  Sex: Male

DRUGS (7)
  1. DEXAMETHASONE [Concomitant]
     Dosage: 4 MILLIGRAM
     Route: 048
  2. HYDROCODONE BITARTRATE AND ACETAMINOPHEN [Concomitant]
     Dosage: 10-500MG
     Route: 048
  3. STOOL SOFTENER [Concomitant]
     Dosage: 240 MILLIGRAM
     Route: 048
  4. FERROUS SULFATE TAB [Concomitant]
     Dosage: 50 MILLIGRAM
     Route: 048
  5. LASIX [Concomitant]
     Dosage: 40 MILLIGRAM
     Route: 048
  6. CUBICIN [Concomitant]
     Dosage: 500 MILLIGRAM
     Route: 065
  7. REVLIMID [Suspect]
     Indication: MULTIPLE MYELOMA
     Dosage: 25 MILLIGRAM
     Route: 048
     Dates: start: 20110701, end: 20110101

REACTIONS (1)
  - PULMONARY EMBOLISM [None]
